FAERS Safety Report 5350018-X (Version None)
Quarter: 2007Q2

REPORT INFORMATION
  Report Type: 
  Country: None (occurrence: None)
  Receive Date: 20070607
  Receipt Date: 20070601
  Transmission Date: 20071010
  Serious: Yes (Hospitalization, Other)
  Sender: FDA-Public Use
  Company Number: CA-GENENTECH-235431

PATIENT
  Sex: Male
  Weight: 85 kg

DRUGS (1)
  1. XOLAIR [Suspect]
     Indication: DRUG USE FOR UNKNOWN INDICATION
     Dosage: 375 MG, UNK
     Route: 058
     Dates: start: 20050912

REACTIONS (4)
  - EPISTAXIS [None]
  - NASAL POLYPS [None]
  - PYREXIA [None]
  - SINUSITIS [None]
